FAERS Safety Report 7010290-7 (Version None)
Quarter: 2010Q3

REPORT INFORMATION
  Report Type: 
  Country: None (occurrence: None)
  Receive Date: 20100923
  Receipt Date: 20100916
  Transmission Date: 20110219
  Serious: Yes (Other)
  Sender: FDA-Public Use
  Company Number: A0881679A

PATIENT
  Sex: Male

DRUGS (2)
  1. AVODART [Suspect]
     Indication: PRODUCT USED FOR UNKNOWN INDICATION
     Dosage: 1CAP UNKNOWN
     Route: 048
  2. DIABETES MEDICATION [Concomitant]

REACTIONS (3)
  - DYSPHAGIA [None]
  - FACIAL PARESIS [None]
  - MYASTHENIA GRAVIS [None]
